FAERS Safety Report 14175034 (Version 2)
Quarter: 2017Q4

REPORT INFORMATION
  Report Type: Spontaneous
  Country: CN (occurrence: CN)
  Receive Date: 20171109
  Receipt Date: 20171117
  Transmission Date: 20180321
  Serious: Yes (Hospitalization, Other)
  Sender: FDA-Public Use
  Company Number: CN-BAYER-2017-196985

PATIENT
  Age: 54 Year
  Sex: Male
  Weight: 42 kg

DRUGS (7)
  1. BAYASPIRIN 100 MG [Suspect]
     Active Substance: ASPIRIN
     Indication: CORONARY ARTERY BYPASS
  2. CLOPIDOGREL [Concomitant]
     Active Substance: CLOPIDOGREL BISULFATE
     Indication: CORONARY ARTERY DISEASE
     Dosage: 75 MG, UNK
     Route: 048
     Dates: start: 201701, end: 20170508
  3. XARELTO [Suspect]
     Active Substance: RIVAROXABAN
     Dosage: UNK
  4. BAYASPIRIN 100 MG [Suspect]
     Active Substance: ASPIRIN
     Indication: ACUTE MYOCARDIAL INFARCTION
  5. HEPARIN-NATRIUM [Concomitant]
     Indication: CORONARY ARTERY DISEASE
     Dosage: 4000 IU, BID
     Route: 048
     Dates: start: 20170427, end: 20170504
  6. BAYASPIRIN 100 MG [Suspect]
     Active Substance: ASPIRIN
     Indication: POSTOPERATIVE CARE
  7. BAYASPIRIN 100 MG [Suspect]
     Active Substance: ASPIRIN
     Indication: CORONARY ARTERY DISEASE
     Dosage: 100 MG, UNK
     Route: 048
     Dates: start: 201701, end: 20170502

REACTIONS (28)
  - Deep vein thrombosis [None]
  - Transaminases increased [None]
  - Peripheral venous disease [None]
  - Aspartate aminotransferase increased [None]
  - Liver injury [None]
  - Decreased appetite [None]
  - Left ventricular hypertrophy [None]
  - Prothrombin time prolonged [None]
  - Pericardial effusion [None]
  - Bilirubin conjugated increased [None]
  - Alanine aminotransferase increased [None]
  - Haematocrit increased [None]
  - Pleural effusion [None]
  - Red blood cell count increased [None]
  - Ischaemic cardiomyopathy [None]
  - Aortic valve incompetence [None]
  - Hepatic function abnormal [None]
  - Dyspnoea [None]
  - Depressed mood [None]
  - Blood bilirubin increased [None]
  - Fibrin D dimer increased [None]
  - Left ventricular failure [None]
  - Wheezing [None]
  - Blood urea increased [None]
  - Blood creatinine increased [None]
  - Blood uric acid increased [None]
  - Haemoglobin increased [None]
  - International normalised ratio increased [None]

NARRATIVE: CASE EVENT DATE: 2017
